FAERS Safety Report 7964387-5 (Version None)
Quarter: 2011Q4

REPORT INFORMATION
  Report Type: 
  Country: None (occurrence: None)
  Receive Date: 20111208
  Receipt Date: 20111205
  Transmission Date: 20120403
  Serious: Yes (Hospitalization)
  Sender: FDA-Public Use
  Company Number: DE-PFIZER INC-2011295785

PATIENT
  Age: 44 Year
  Sex: Male

DRUGS (8)
  1. LYRICA [Suspect]
     Dosage: 300 MG, 1X/DAY
     Dates: start: 20110601
  2. BUSPIRONE HCL [Suspect]
     Dosage: 15 MG, 1X/DAY
     Route: 048
     Dates: start: 20100301, end: 20110331
  3. TRIMIPRAMINE MALEATE [Suspect]
     Dosage: 175 MG, 1X/DAY
     Route: 048
     Dates: start: 20100701
  4. LEVOTHYROXINE SODIUM [Concomitant]
     Dosage: 100 UG, 1X/DAY
     Route: 048
     Dates: start: 20090101
  5. LYRICA [Suspect]
     Dosage: 75 MG, 1X/DAY
     Route: 048
     Dates: start: 20080501, end: 20090228
  6. LYRICA [Suspect]
     Dosage: 150 MG, 1X/DAY
     Route: 048
     Dates: start: 20090301, end: 20110531
  7. BUSPIRONE HCL [Suspect]
     Dosage: 20 MG, 1X/DAY
     Route: 048
     Dates: start: 20110401
  8. ZYPREXA [Suspect]
     Dosage: 25 MG, 1X/DAY
     Route: 048
     Dates: start: 20110401, end: 20110701

REACTIONS (2)
  - WEIGHT INCREASED [None]
  - METABOLIC SYNDROME [None]
